FAERS Safety Report 9108973 (Version 1)
Quarter: 2013Q1

REPORT INFORMATION
  Report Type: Spontaneous
  Country: FR (occurrence: FR)
  Receive Date: 20130222
  Receipt Date: 20130222
  Transmission Date: 20140127
  Serious: Yes (Hospitalization, Other)
  Sender: FDA-Public Use
  Company Number: FR-ELI_LILLY_AND_COMPANY-FR201302003113

PATIENT
  Sex: Female

DRUGS (3)
  1. ALIMTA [Suspect]
     Indication: LUNG ADENOCARCINOMA
     Dosage: 850 MG, UNKNOWN
     Route: 042
     Dates: start: 201112
  2. AVASTIN [Concomitant]
     Dosage: UNK
     Dates: start: 201112, end: 201207
  3. AVASTIN [Concomitant]
     Dosage: 800 MG, UNK
     Dates: start: 201209

REACTIONS (3)
  - Pelvic fracture [Unknown]
  - Pancytopenia [Recovering/Resolving]
  - Off label use [Unknown]
